FAERS Safety Report 18333430 (Version 1)
Quarter: 2020Q4

REPORT INFORMATION
  Report Type: Spontaneous
  Country: HR (occurrence: HR)
  Receive Date: 20201001
  Receipt Date: 20201001
  Transmission Date: 20210113
  Serious: Yes (Other)
  Sender: FDA-Public Use
  Company Number: HR-TEVA-2020-HR-1832774

PATIENT
  Sex: Female

DRUGS (3)
  1. MODITEN [Suspect]
     Active Substance: FLUPHENAZINE
     Dosage: 250 MG
     Route: 048
     Dates: start: 202008, end: 202008
  2. PRAXITEN [Suspect]
     Active Substance: OXAZEPAM
     Dosage: 1350 MG
     Route: 048
     Dates: start: 202008, end: 202008
  3. LEPONEX [Suspect]
     Active Substance: CLOZAPINE
     Dosage: 250 MG
     Route: 048
     Dates: start: 202008, end: 202008

REACTIONS (4)
  - Suicide attempt [Unknown]
  - Altered state of consciousness [Unknown]
  - Somnolence [Unknown]
  - Intentional overdose [Unknown]

NARRATIVE: CASE EVENT DATE: 202008
